FAERS Safety Report 5445146-4 (Version None)
Quarter: 2007Q3

REPORT INFORMATION
  Report Type: 
  Country: None (occurrence: None)
  Receive Date: 20070730
  Receipt Date: 20070328
  Transmission Date: 20080115
  Serious: Yes (Hospitalization)
  Sender: FDA-Public Use
  Company Number: 237542

PATIENT
  Age: 76 Year
  Sex: Male

DRUGS (14)
  1. RITUXAN [Suspect]
     Indication: LYMPHOMA
     Dosage: 694 MG, 1/WEEK, INTRAVENOUS
     Route: 042
     Dates: start: 20070301, end: 20070301
  2. TYLENOL (CAPLET) [Concomitant]
  3. BENADRYL [Concomitant]
  4. PROCRIT [Concomitant]
  5. COUMADIN [Concomitant]
  6. DIGOXIN [Concomitant]
  7. LOPRESSOR [Concomitant]
  8. LIPITOR [Concomitant]
  9. LASIX [Concomitant]
  10. CALVAN (VERAPAMIL HYDROCHLORIDE) [Concomitant]
  11. POTASSIUM (POTASSIUM NOS) [Concomitant]
  12. SPIRIVA [Concomitant]
  13. FORADIL [Concomitant]
  14. PULMICORT [Concomitant]

REACTIONS (2)
  - HYPOTENSION [None]
  - HYPOXIA [None]
